FAERS Safety Report 13208152 (Version 1)
Quarter: 2017Q1

REPORT INFORMATION
  Report Type: Spontaneous
  Country: US (occurrence: US)
  Receive Date: 20170209
  Receipt Date: 20170209
  Transmission Date: 20170428
  Serious: Yes (Other)
  Sender: FDA-Public Use
  Company Number: US-BAYER-2016-222607

PATIENT

DRUGS (5)
  1. ALKA-SELTZER ORIGINAL [Suspect]
     Active Substance: ANHYDROUS CITRIC ACID\ASPIRIN\SODIUM BICARBONATE
     Dosage: UNK
  2. MIRALAX [Suspect]
     Active Substance: POLYETHYLENE GLYCOL 3350
  3. BAYER GENUINE ASPIRIN [Suspect]
     Active Substance: ASPIRIN
     Route: 065
  4. ALEVE [Suspect]
     Active Substance: NAPROXEN SODIUM
  5. MILK OF MAGNESIA ORIGINAL [Suspect]
     Active Substance: MAGNESIUM HYDROXIDE
     Dosage: UNK
     Dates: start: 2010

REACTIONS (17)
  - Therapeutic response unexpected [None]
  - Tongue discomfort [Unknown]
  - Vomiting [Unknown]
  - Labelled drug-drug interaction medication error [None]
  - Transient ischaemic attack [None]
  - Product use issue [Unknown]
  - Epistaxis [Unknown]
  - Drug ineffective [Unknown]
  - Drug ineffective [None]
  - Myocardial infarction [Unknown]
  - Dyspepsia [Unknown]
  - Product use issue [None]
  - Wrong technique in product usage process [None]
  - Drug administration error [None]
  - Haematemesis [Unknown]
  - Oral discomfort [Unknown]
  - Product taste abnormal [None]

NARRATIVE: CASE EVENT DATE: 20160406
